FAERS Safety Report 18648396 (Version 2)
Quarter: 2021Q1

REPORT INFORMATION
  Report Type: Spontaneous
  Country: US (occurrence: US)
  Receive Date: 20201222
  Receipt Date: 20210105
  Transmission Date: 20210419
  Serious: Yes (Hospitalization)
  Sender: FDA-Public Use
  Company Number: US-VERTEX PHARMACEUTICALS-2020-024988

PATIENT
  Sex: Female
  Weight: 76 kg

DRUGS (12)
  1. TRAZODONE HYDROCHLORIDE. [Concomitant]
     Active Substance: TRAZODONE HYDROCHLORIDE
  2. ZENPEP [Concomitant]
     Active Substance: PANCRELIPASE AMYLASE\PANCRELIPASE LIPASE\PANCRELIPASE PROTEASE
     Dosage: 20?63?84K CAPSULE DR
  3. COLISTIN SULFATE [Concomitant]
     Active Substance: COLISTIN SULFATE
     Dosage: 1 B UNIT POWDER (EA)
  4. ALBUTEROL SULFATE. [Concomitant]
     Active Substance: ALBUTEROL SULFATE
  5. TRIKAFTA [Suspect]
     Active Substance: ELEXACAFTOR\IVACAFTOR\TEZACAFTOR
     Indication: CYSTIC FIBROSIS
     Dosage: 2 ORANGE TAB (100 MG ELEXA/ 50 MG TEZA/ 75 MG IVA) AM; 1 BLUE TAB (150MG IVA) PM
     Route: 048
  6. PULMOZYME [Concomitant]
     Active Substance: DORNASE ALFA
  7. HYPERSAL [Concomitant]
     Active Substance: SODIUM CHLORIDE
  8. MAGNESIUM OXIDE. [Concomitant]
     Active Substance: MAGNESIUM OXIDE
  9. CLOMIPRAMINE HCL [Concomitant]
     Active Substance: CLOMIPRAMINE
  10. GABAPENTIN. [Concomitant]
     Active Substance: GABAPENTIN
  11. CAYSTON [Concomitant]
     Active Substance: AZTREONAM
  12. KLONOPIN [Concomitant]
     Active Substance: CLONAZEPAM

REACTIONS (3)
  - Hospitalisation [Unknown]
  - Infection [Unknown]
  - Infective pulmonary exacerbation of cystic fibrosis [Unknown]

NARRATIVE: CASE EVENT DATE: 2020
